FAERS Safety Report 23308510 (Version 1)
Quarter: 2023Q4

REPORT INFORMATION
  Report Type: Spontaneous
  Country: US (occurrence: US)
  Receive Date: 20231218
  Receipt Date: 20231218
  Transmission Date: 20240110
  Serious: No
  Sender: FDA-Public Use
  Company Number: US-BRISTOL-MYERS SQUIBB COMPANY-2023-182954

PATIENT
  Age: 70 Year
  Sex: Female
  Weight: 51.26 kg

DRUGS (1)
  1. REVLIMID [Suspect]
     Active Substance: LENALIDOMIDE
     Indication: CREST syndrome
     Dosage: DAILY FOR 14DAYS
     Route: 048

REACTIONS (3)
  - Hordeolum [Unknown]
  - Feeling abnormal [Unknown]
  - Off label use [Unknown]
